FAERS Safety Report 20507037 (Version 1)
Quarter: 2022Q1

REPORT INFORMATION
  Report Type: Spontaneous
  Country: US (occurrence: None)
  Receive Date: 20220222
  Receipt Date: 20220222
  Transmission Date: 20220423
  Serious: Yes (Life-Threatening, Hospitalization, Disabling)
  Sender: FDA-Public Use
  Company Number: None

PATIENT
  Age: 75 Year
  Sex: Female
  Weight: 62.1 kg

DRUGS (5)
  1. PRAMIPEXOLE [Suspect]
     Active Substance: PRAMIPEXOLE
     Indication: Restless legs syndrome
     Dosage: FREQUENCY : AT BEDTIME;?
     Route: 048
     Dates: start: 20200601
  2. BUPROPION [Concomitant]
     Active Substance: BUPROPION
  3. TORSEMIDE [Concomitant]
     Active Substance: TORSEMIDE
  4. MAGNESIUM [Concomitant]
     Active Substance: MAGNESIUM
  5. POTASSIUM [Concomitant]
     Active Substance: POTASSIUM

REACTIONS (9)
  - Adverse drug reaction [None]
  - Somnolence [None]
  - Tremor [None]
  - Dizziness [None]
  - Disorientation [None]
  - Feeling abnormal [None]
  - Somnolence [None]
  - Hallucination [None]
  - Implantable cardiac monitor insertion [None]

NARRATIVE: CASE EVENT DATE: 20210301
